FAERS Safety Report 14568148 (Version 2)
Quarter: 2018Q1

REPORT INFORMATION
  Report Type: Spontaneous
  Country: US (occurrence: US)
  Receive Date: 20180223
  Receipt Date: 20180226
  Transmission Date: 20180509
  Serious: No
  Sender: FDA-Public Use
  Company Number: US-PFIZER INC-2018076191

PATIENT
  Age: 10 Year
  Sex: Male
  Weight: 24.36 kg

DRUGS (1)
  1. QUILLICHEW ER [Suspect]
     Active Substance: METHYLPHENIDATE HYDROCHLORIDE
     Indication: ATTENTION DEFICIT/HYPERACTIVITY DISORDER
     Dosage: 30 MG, FIVE DAYS A WEEK
     Route: 048
     Dates: start: 20180215

REACTIONS (2)
  - Lethargy [Unknown]
  - Eating disorder [Unknown]

NARRATIVE: CASE EVENT DATE: 20180215
